FAERS Safety Report 9936784 (Version 1)
Quarter: 2014Q1

REPORT INFORMATION
  Report Type: Spontaneous
  Country: US (occurrence: None)
  Receive Date: 20140109
  Receipt Date: 20140109
  Transmission Date: 20141002
  Serious: Yes (Hospitalization, Other)
  Sender: FDA-Public Use
  Company Number: 375497

PATIENT
  Sex: Female

DRUGS (2)
  1. LEVEMIR FLEXPEN (INSULIN DETEMIR) SOLUTION FOR INJECTION, .0024MOL/L [Suspect]
     Indication: TYPE 1 DIABETES MELLITUS
     Dosage: 15 UNITS AT NIGHT
     Route: 058
     Dates: start: 201301
  2. HUMALOG (INSULIN LISPRO) [Concomitant]

REACTIONS (5)
  - Diabetic ketoacidosis [None]
  - Blood glucose decreased [None]
  - Tremor [None]
  - Dyskinesia [None]
  - Dysarthria [None]
